FAERS Safety Report 22699402 (Version 4)
Quarter: 2023Q4

REPORT INFORMATION
  Report Type: Spontaneous
  Country: AT (occurrence: AT)
  Receive Date: 20230713
  Receipt Date: 20231023
  Transmission Date: 20240109
  Serious: Yes (Other)
  Sender: FDA-Public Use
  Company Number: AT-JNJFOC-20230715055

PATIENT
  Sex: Female
  Weight: 57 kg

DRUGS (1)
  1. STELARA [Suspect]
     Active Substance: USTEKINUMAB
     Indication: Crohn^s disease
     Dosage: LAST TIME: 26-FEB-2023
     Route: 058
     Dates: start: 20210304

REACTIONS (5)
  - Premature separation of placenta [Recovered/Resolved]
  - Foetal death [Unknown]
  - Exposure during pregnancy [Recovered/Resolved]
  - Placental disorder [Unknown]
  - Off label use [Unknown]
